FAERS Safety Report 21520893 (Version 5)
Quarter: 2023Q2

REPORT INFORMATION
  Report Type: Spontaneous
  Country: JP (occurrence: JP)
  Receive Date: 20221028
  Receipt Date: 20230619
  Transmission Date: 20230722
  Serious: Yes (Death, Life-Threatening, Other)
  Sender: FDA-Public Use
  Company Number: JP-MSD-2209JPN003767J

PATIENT
  Sex: Male
  Weight: 121 kg

DRUGS (10)
  1. ROCURONIUM BROMIDE [Suspect]
     Active Substance: ROCURONIUM BROMIDE
     Indication: Neuromuscular blocking therapy
     Dosage: 80 MILLIGRAM, QD
     Route: 042
     Dates: start: 20220922, end: 20220922
  2. BRIDION [Suspect]
     Active Substance: SUGAMMADEX
     Indication: Neuromuscular blockade reversal
     Dosage: 200 MILLIGRAM, QD
     Route: 042
     Dates: start: 20220922, end: 20220922
  3. BRIDION [Suspect]
     Active Substance: SUGAMMADEX
     Dosage: 500 MILLIGRAM
     Route: 042
     Dates: start: 20220922, end: 20220922
  4. BRIDION [Suspect]
     Active Substance: SUGAMMADEX
     Dosage: 100 MILLIGRAM
     Route: 042
     Dates: start: 20220922, end: 20220922
  5. SEVOFLURANE [Concomitant]
     Active Substance: SEVOFLURANE
     Indication: General anaesthesia
     Dosage: 1 PERCENT
     Dates: start: 20220922, end: 20220922
  6. REMIFENTANIL HYDROCHLORIDE [Concomitant]
     Active Substance: REMIFENTANIL HYDROCHLORIDE
     Indication: General anaesthesia
     Dosage: 0.5-2 MILLIGRAM /H
     Route: 042
     Dates: start: 20220922, end: 20220922
  7. EPHEDRINE HYDROCHLORIDE [Concomitant]
     Active Substance: EPHEDRINE HYDROCHLORIDE
     Indication: General anaesthesia
     Dosage: 6 MILLIGRAM, TID
     Route: 042
     Dates: start: 20220922, end: 20220922
  8. PHENYLEPHRINE HYDROCHLORIDE [Concomitant]
     Active Substance: PHENYLEPHRINE HYDROCHLORIDE
     Indication: General anaesthesia
     Dosage: 0.05 MILLIGRAM, QID
     Route: 042
     Dates: start: 20220922, end: 20220922
  9. REPAGLINIDE [Concomitant]
     Active Substance: REPAGLINIDE
     Indication: Type 2 diabetes mellitus
     Dosage: 0.25 MILLIGRAM
     Route: 048
  10. INSULIN GLARGINE [Concomitant]
     Active Substance: INSULIN GLARGINE
     Indication: Type 2 diabetes mellitus
     Dosage: 22 DOSAGE FORM
     Route: 065

REACTIONS (10)
  - Recurrence of neuromuscular blockade [Recovered/Resolved]
  - Necrotising soft tissue infection [Unknown]
  - Gastrointestinal haemorrhage [Unknown]
  - Pulseless electrical activity [Unknown]
  - Cellulitis [Fatal]
  - Septic shock [Fatal]
  - Immobilisation syndrome [Unknown]
  - Decubitus ulcer [Unknown]
  - Underdose [Unknown]
  - Overdose [Unknown]

NARRATIVE: CASE EVENT DATE: 20220101
